FAERS Safety Report 10587805 (Version 1)
Quarter: 2014Q4

REPORT INFORMATION
  Report Type: Spontaneous
  Country: CN (occurrence: CN)
  Receive Date: 20141117
  Receipt Date: 20141117
  Transmission Date: 20150529
  Serious: Yes (Life-Threatening, Hospitalization, Other)
  Sender: FDA-Public Use
  Company Number: CN-PFIZER INC-2014313209

PATIENT
  Age: 7 Decade
  Sex: Male

DRUGS (4)
  1. MEDROL [Suspect]
     Active Substance: METHYLPREDNISOLONE
     Indication: PANNICULITIS
     Dosage: 24 MG, DAILY,CONTINUED 1 MONTH
     Route: 048
     Dates: start: 201406, end: 2014
  2. MEDROL [Suspect]
     Active Substance: METHYLPREDNISOLONE
     Dosage: 12 MG, DAILY
     Route: 048
     Dates: start: 2014, end: 20140926
  3. MEDROL [Suspect]
     Active Substance: METHYLPREDNISOLONE
     Dosage: 20 MG, DAILY, CONTINUED 1 MONTH
     Route: 048
     Dates: start: 2014, end: 2014
  4. MEDROL [Suspect]
     Active Substance: METHYLPREDNISOLONE
     Dosage: 16 MG, DAILY,CONTINUED 1 MONTH
     Route: 048
     Dates: start: 2014, end: 2014

REACTIONS (11)
  - Regurgitation [Recovered/Resolved]
  - Abasia [Not Recovered/Not Resolved]
  - Palpitations [Not Recovered/Not Resolved]
  - Somnolence [Not Recovered/Not Resolved]
  - Product use issue [Not Recovered/Not Resolved]
  - Hypertension [Recovered/Resolved]
  - Gastric ulcer [Recovered/Resolved]
  - Gastric haemorrhage [Recovered/Resolved]
  - Muscular weakness [Not Recovered/Not Resolved]
  - Chest discomfort [Not Recovered/Not Resolved]
  - Dyspnoea [Not Recovered/Not Resolved]

NARRATIVE: CASE EVENT DATE: 20140926
